FAERS Safety Report 7336297-8 (Version None)
Quarter: 2011Q1

REPORT INFORMATION
  Report Type: 
  Country: None (occurrence: None)
  Receive Date: 20110307
  Receipt Date: 20110301
  Transmission Date: 20110831
  Serious: Yes (Other)
  Sender: FDA-Public Use
  Company Number: US-PFIZER INC-2010181959

PATIENT
  Sex: Female
  Weight: 81.179 kg

DRUGS (7)
  1. NEBIVOLOL [Concomitant]
     Indication: HYPERTENSION
     Dosage: 10 MG, 1X/DAY
     Route: 048
  2. AMLODIPINE BESYLATE/VALSARTAN [Concomitant]
     Indication: HYPERTENSION
     Dosage: 5/160 MG, 1X/DAY
     Route: 048
  3. REVATIO [Suspect]
     Indication: PULMONARY HYPERTENSION
     Dosage: 20 MG, 3X/DAY
     Route: 048
     Dates: start: 20101220, end: 20110104
  4. ADVAIR DISKUS 100/50 [Concomitant]
     Dosage: 250 MG, UNK
  5. ACETYLSALICYLIC ACID [Concomitant]
     Indication: CARDIAC DISORDER
     Dosage: 81 MG, 1X/DAY
  6. ADVAIR DISKUS 100/50 [Concomitant]
     Indication: ASTHMA
     Dosage: 250/50 UG, 2X/DAY
  7. OMEPRAZOLE [Concomitant]
     Indication: GASTROOESOPHAGEAL REFLUX DISEASE
     Dosage: 20 MG, 1X/DAY

REACTIONS (7)
  - FEELING ABNORMAL [None]
  - HOT FLUSH [None]
  - MYALGIA [None]
  - PAIN [None]
  - HEADACHE [None]
  - ARTHRITIS [None]
  - INSOMNIA [None]
